FAERS Safety Report 9838548 (Version 1)
Quarter: 2013Q4

REPORT INFORMATION
  Report Type: Spontaneous
  Country: US (occurrence: None)
  Receive Date: 20131206
  Receipt Date: 20131206
  Transmission Date: 20140711
  Serious: Yes (Other)
  Sender: FDA-Public Use
  Company Number: 385200

PATIENT
  Age: 47 Year
  Sex: Male
  Weight: 79.4 kg

DRUGS (1)
  1. NOVOLOG [Suspect]
     Indication: TYPE 2 DIABETES MELLITUS
     Route: 058
     Dates: end: 2011

REACTIONS (2)
  - Device malfunction [None]
  - Blood glucose increased [None]
